FAERS Safety Report 9161647 (Version 3)
Quarter: 2013Q3

REPORT INFORMATION
  Report Type: Spontaneous
  Country: US (occurrence: US)
  Receive Date: 20130314
  Receipt Date: 20130718
  Transmission Date: 20140515
  Serious: Yes (Hospitalization, Other)
  Sender: FDA-Public Use
  Company Number: US-ABBOTT-13P-163-1060483-00

PATIENT
  Age: 36 Year
  Sex: Female
  Weight: 53.1 kg

DRUGS (3)
  1. DIVALPROEX SODIUM EXTENDED RELEASE [Suspect]
     Indication: CONVULSION PROPHYLAXIS
     Route: 048
  2. PHENYTOIN [Suspect]
     Indication: CONVULSION PROPHYLAXIS
  3. PHENOBARBITAL SODIUM [Suspect]
     Indication: CONVULSION PROPHYLAXIS

REACTIONS (1)
  - Drug reaction with eosinophilia and systemic symptoms [Unknown]
